FAERS Safety Report 15580558 (Version 1)
Quarter: 2018Q4

REPORT INFORMATION
  Report Type: Spontaneous
  Country: NL (occurrence: NL)
  Receive Date: 20181102
  Receipt Date: 20181102
  Transmission Date: 20190205
  Serious: Yes (Other)
  Sender: FDA-Public Use
  Company Number: NL-009507513-1707NLD004661

PATIENT
  Sex: Female

DRUGS (2)
  1. SINEMET [Suspect]
     Active Substance: CARBIDOPA\LEVODOPA
     Indication: PARKINSON^S DISEASE
     Route: 048
  2. SINEMET [Suspect]
     Active Substance: CARBIDOPA\LEVODOPA
     Indication: PARKINSON^S DISEASE
     Dosage: 1.5 TABLET (STRENGTH 100/25 MG) THREE TIMES A DAY
     Route: 048

REACTIONS (5)
  - Blister [Unknown]
  - Allergic reaction to excipient [Unknown]
  - Parkinson^s disease [Unknown]
  - Wrong technique in product usage process [Unknown]
  - Rash [Unknown]
